FAERS Safety Report 4383066-7 (Version None)
Quarter: 2004Q2

REPORT INFORMATION
  Report Type: 
  Country: None (occurrence: None)
  Receive Date: 20040610
  Receipt Date: 20040504
  Transmission Date: 20050107
  Serious: No
  Sender: FDA-Public Use
  Company Number: US-JNJFOC-20040500538

PATIENT
  Sex: Male
  Weight: 102.0593 kg

DRUGS (1)
  1. NATRECOR [Suspect]
     Indication: CARDIAC FAILURE CONGESTIVE
     Dosage: 2 UG/KG, INTRAVENOUS
     Route: 042
     Dates: start: 20040428, end: 20040428

REACTIONS (3)
  - HYPOTENSION [None]
  - MEDICATION ERROR [None]
  - OVERDOSE [None]
